FAERS Safety Report 6731568-8 (Version None)
Quarter: 2010Q2

REPORT INFORMATION
  Report Type: 
  Country: None (occurrence: None)
  Receive Date: 20100519
  Receipt Date: 20100507
  Transmission Date: 20101027
  Serious: Yes (Other)
  Sender: FDA-Public Use
  Company Number: 2007BI002649

PATIENT
  Age: 52 Year
  Sex: Male
  Weight: 115 kg

DRUGS (7)
  1. TYSABRI [Suspect]
     Indication: MULTIPLE SCLEROSIS
     Route: 042
     Dates: start: 20050101, end: 20050201
  2. TYSABRI [Suspect]
     Route: 042
     Dates: start: 20060701, end: 20060901
  3. TYSABRI [Suspect]
     Route: 042
     Dates: start: 20061208, end: 20070202
  4. DITROPAN [Concomitant]
  5. BACLOFEN [Concomitant]
  6. ACIPHEX [Concomitant]
  7. OMACOR [Concomitant]

REACTIONS (2)
  - ANAPHYLACTIC REACTION [None]
  - HYPERTENSION [None]
